FAERS Safety Report 10634933 (Version 2)
Quarter: 2015Q1

REPORT INFORMATION
  Report Type: Report from Study
  Country: GB (occurrence: GB)
  Receive Date: 20141205
  Receipt Date: 20150203
  Transmission Date: 20150720
  Serious: Yes (Hospitalization, Other)
  Sender: FDA-Public Use
  Company Number: PHFR2014GB008359

PATIENT
  Age: 36 Year
  Sex: Male

DRUGS (1)
  1. AMN107 [Suspect]
     Active Substance: NILOTINIB
     Indication: CHRONIC MYELOID LEUKAEMIA
     Dosage: 300 MG, BID
     Route: 065
     Dates: start: 20110402

REACTIONS (9)
  - Lower respiratory tract infection [Recovered/Resolved]
  - Haemothorax [Recovered/Resolved]
  - Night sweats [Recovered/Resolved]
  - Dyspnoea [Recovered/Resolved]
  - Pyrexia [Unknown]
  - Pericarditis [Recovered/Resolved]
  - Chest pain [Recovered/Resolved]
  - Pleural effusion [Recovered/Resolved]
  - Empyema [Recovered/Resolved]

NARRATIVE: CASE EVENT DATE: 201206
